FAERS Safety Report 8325224-2 (Version None)
Quarter: 2012Q2

REPORT INFORMATION
  Report Type: 
  Country: None (occurrence: None)
  Receive Date: 20120501
  Receipt Date: 20120424
  Transmission Date: 20120825
  Serious: Yes (Hospitalization, Other)
  Sender: FDA-Public Use
  Company Number: BR-PFIZER INC-2012102120

PATIENT
  Age: 56 Year
  Sex: Female

DRUGS (5)
  1. HYDROCHLOROTHIAZIDE [Concomitant]
     Indication: HYPERTENSION
     Dosage: UNK
     Dates: start: 20110601
  2. ATORVASTATIN CALCIUM [Suspect]
     Indication: BLOOD CHOLESTEROL
     Dosage: 1 TABLET OF 10 MG, DAILY
     Route: 048
     Dates: start: 20111001
  3. FLUNARIZINE [Concomitant]
     Indication: LABYRINTHITIS
     Dosage: UNK
     Dates: start: 20020101
  4. LOSARTAN POTASSIUM [Concomitant]
     Indication: HYPERTENSION
     Dosage: UNK
     Dates: start: 20110601
  5. ACETYLSALICYLIC ACID [Concomitant]
     Indication: HYPERTENSION
     Dosage: UNK
     Dates: start: 20110601

REACTIONS (3)
  - NERVE INJURY [None]
  - INTERVERTEBRAL DISC PROTRUSION [None]
  - PAIN [None]
